FAERS Safety Report 12573121 (Version 3)
Quarter: 2016Q3

REPORT INFORMATION
  Report Type: Spontaneous
  Country: US (occurrence: US)
  Receive Date: 20160720
  Receipt Date: 20160808
  Transmission Date: 20161109
  Serious: No
  Sender: FDA-Public Use
  Company Number: US-BEH-2016061868

PATIENT
  Age: 52 Year
  Sex: Female
  Weight: 62 kg

DRUGS (17)
  1. HIZENTRA [Suspect]
     Active Substance: HUMAN IMMUNOGLOBULIN G
     Indication: IMMUNODEFICIENCY COMMON VARIABLE
     Route: 058
  2. ARMOUR THYROID [Concomitant]
     Active Substance: THYROID, PORCINE
  3. PROBIOTIC [Concomitant]
     Active Substance: PROBIOTICS NOS
  4. CLARITIN [Concomitant]
     Active Substance: LORATADINE
  5. ATIVAN [Concomitant]
     Active Substance: LORAZEPAM
  6. SENNA [Concomitant]
     Active Substance: SENNA LEAF\SENNOSIDES\SENNOSIDES A AND B
  7. RANITIDINE. [Concomitant]
     Active Substance: RANITIDINE
  8. MAGNESIUM [Concomitant]
     Active Substance: MAGNESIUM
  9. QNASL [Concomitant]
     Active Substance: BECLOMETHASONE DIPROPIONATE
  10. EPIPEN [Concomitant]
     Active Substance: EPINEPHRINE
  11. ATENOLOL. [Concomitant]
     Active Substance: ATENOLOL
  12. HIZENTRA [Suspect]
     Active Substance: HUMAN IMMUNOGLOBULIN G
     Route: 058
     Dates: start: 20151006
  13. ACETAMINOPHEN. [Concomitant]
     Active Substance: ACETAMINOPHEN
  14. VITAMIN D [Concomitant]
     Active Substance: CHOLECALCIFEROL
  15. LMX [Concomitant]
     Active Substance: LIDOCAINE
  16. POTASSIUM CHLORIDE. [Concomitant]
     Active Substance: POTASSIUM CHLORIDE
  17. BIOTIN [Concomitant]
     Active Substance: BIOTIN

REACTIONS (3)
  - Tachycardia [Unknown]
  - Sinusitis [Unknown]
  - Flushing [Unknown]

NARRATIVE: CASE EVENT DATE: 20160211
